FAERS Safety Report 7224970-1 (Version None)
Quarter: 2011Q1

REPORT INFORMATION
  Report Type: 
  Country: None (occurrence: None)
  Receive Date: 20110113
  Receipt Date: 20110107
  Transmission Date: 20110831
  Serious: Yes (Hospitalization)
  Sender: FDA-Public Use
  Company Number: US-GILEAD-2010-0034612

PATIENT
  Sex: Female

DRUGS (1)
  1. LETAIRIS [Suspect]
     Indication: PRODUCT USED FOR UNKNOWN INDICATION
     Route: 048
     Dates: start: 20100125

REACTIONS (6)
  - ANAEMIA [None]
  - ANXIETY [None]
  - ATRIAL FIBRILLATION [None]
  - HYPOKALAEMIA [None]
  - HAEMORRHAGE [None]
  - HIP ARTHROPLASTY [None]
